FAERS Safety Report 7386102-9 (Version None)
Quarter: 2011Q1

REPORT INFORMATION
  Report Type: 
  Country: None (occurrence: None)
  Receive Date: 20110331
  Receipt Date: 20110322
  Transmission Date: 20110831
  Serious: Yes (Hospitalization, Other)
  Sender: FDA-Public Use
  Company Number: PT-JNJFOC-20110311409

PATIENT
  Age: 83 Year
  Sex: Male

DRUGS (10)
  1. LEVOFLOXACIN [Suspect]
     Indication: URINARY TRACT INFECTION
     Route: 065
  2. WARFARIN [Concomitant]
     Route: 065
  3. PRAVASTATIN [Concomitant]
     Route: 065
  4. GLIPIZIDE [Concomitant]
     Route: 065
  5. SPIRONOLACTONE [Concomitant]
     Route: 065
  6. SITAGLIPTIN [Concomitant]
     Route: 065
  7. METOLAZONE [Concomitant]
     Route: 065
  8. FUROSEMIDE [Concomitant]
     Route: 065
  9. CANDESARTAN [Concomitant]
     Route: 065
  10. THEOPHYLLINE [Concomitant]
     Route: 065

REACTIONS (2)
  - AGGRESSION [None]
  - PSYCHOTIC DISORDER [None]
